FAERS Safety Report 4771581-3 (Version None)
Quarter: 2005Q3

REPORT INFORMATION
  Report Type: 
  Country: None (occurrence: None)
  Receive Date: 20050914
  Receipt Date: 20050914
  Transmission Date: 20060218
  Serious: Yes (Hospitalization, Other)
  Sender: FDA-Public Use
  Company Number: None

PATIENT
  Sex: Male
  Weight: 91.4 kg

DRUGS (3)
  1. FLUOROURACIL [Suspect]
     Indication: GASTRIC CANCER
     Dosage: SEE IMAGE
     Dates: start: 20050829, end: 20050902
  2. LEUCOVORIN [Suspect]
     Dosage: SEE IMAGE
     Dates: start: 20050829, end: 20050902
  3. RADIATION [Suspect]
     Dosage: SEE IMAGE
     Dates: start: 20050829

REACTIONS (2)
  - DEEP VEIN THROMBOSIS [None]
  - PULMONARY EMBOLISM [None]
